FAERS Safety Report 5915816-X (Version None)
Quarter: 2008Q4

REPORT INFORMATION
  Report Type: 
  Country: None (occurrence: None)
  Receive Date: 20081010
  Receipt Date: 20080929
  Transmission Date: 20090506
  Serious: Yes (Other)
  Sender: FDA-Public Use
  Company Number: US-PFIZER INC-2008082674

PATIENT
  Sex: Female

DRUGS (5)
  1. DILANTIN [Suspect]
     Indication: GRAND MAL CONVULSION
     Dates: start: 19730101
  2. DILANTIN [Suspect]
     Indication: GRAND MAL CONVULSION
     Dates: start: 20080601
  3. DILANTIN [Suspect]
     Indication: GRAND MAL CONVULSION
     Dates: start: 20080101
  4. PHENOBARBITAL [Concomitant]
     Indication: CONVULSION
  5. TOPAMAX [Concomitant]
     Indication: CONVULSION

REACTIONS (9)
  - CARDIAC DISORDER [None]
  - DROOLING [None]
  - DRUG INEFFECTIVE [None]
  - IRON DEFICIENCY [None]
  - SPEECH DISORDER [None]
  - SPINAL OPERATION [None]
  - TONGUE DISORDER [None]
  - UNEVALUABLE EVENT [None]
  - WEIGHT INCREASED [None]
